FAERS Safety Report 17946287 (Version 2)
Quarter: 2020Q3

REPORT INFORMATION
  Report Type: Report from Study
  Country: US (occurrence: US)
  Receive Date: 20200625
  Receipt Date: 20200911
  Transmission Date: 20201103
  Serious: No
  Sender: FDA-Public Use
  Company Number: NVSC2020US179132

PATIENT
  Sex: Female

DRUGS (3)
  1. PIQRAY [Suspect]
     Active Substance: ALPELISIB
     Route: 048
  2. PIQRAY [Suspect]
     Active Substance: ALPELISIB
     Indication: PRODUCT USED FOR UNKNOWN INDICATION
     Dosage: UNK
     Route: 048
  3. PIQRAY [Suspect]
     Active Substance: ALPELISIB
     Dosage: 150 MG, QD
     Route: 048

REACTIONS (9)
  - Rash [Unknown]
  - Stomatitis [Unknown]
  - Blood glucose increased [Unknown]
  - Lip swelling [Unknown]
  - Lip blister [Unknown]
  - Cheilitis [Unknown]
  - Oral mucosal blistering [Unknown]
  - Nausea [Unknown]
  - Oral disorder [Unknown]
